FAERS Safety Report 7793952 (Version 3)
Quarter: 2014Q1

REPORT INFORMATION
  Report Type: Spontaneous
  Country: US (occurrence: US)
  Receive Date: 20110201
  Receipt Date: 20140106
  Transmission Date: 20141002
  Serious: Yes (Hospitalization, Other)
  Sender: FDA-Public Use
  Company Number: US-BAYER-2011-009805

PATIENT
  Age: 25 Year
  Sex: Female

DRUGS (10)
  1. YASMIN [Suspect]
     Indication: CONTRACEPTION
     Dosage: UNK
     Dates: start: 2003, end: 2008
  2. YASMIN [Suspect]
     Indication: ACNE
  3. WELLBUTRIN [Concomitant]
     Dosage: 100 MG, BID
     Route: 048
  4. PAXIL [Concomitant]
     Dosage: 5 MG, QD
     Route: 048
     Dates: start: 200407
  5. PREVACID [Concomitant]
     Dosage: UNK UNK, QD
     Route: 048
     Dates: start: 200407
  6. CHOLESTYRAMINE [Concomitant]
     Dosage: 4 MG, BID
     Route: 048
  7. CIPRO [Concomitant]
     Dosage: UNK
     Dates: start: 200407, end: 200407
  8. FLAGYL [Concomitant]
     Dosage: UNK
     Dates: start: 200407, end: 200407
  9. TEMAZEPAM [Concomitant]
     Dosage: 30 MG, UNK
     Dates: start: 20040614
  10. LONOX [Concomitant]
     Dosage: 2.5-.025 MG
     Dates: start: 20040707

REACTIONS (5)
  - Cholecystitis chronic [None]
  - Cholelithiasis [None]
  - Biliary dyskinesia [None]
  - Pain [None]
  - Injury [None]
